FAERS Safety Report 12957598 (Version 1)
Quarter: 2016Q4

REPORT INFORMATION
  Report Type: Spontaneous
  Country: US (occurrence: US)
  Receive Date: 20161118
  Receipt Date: 20161118
  Transmission Date: 20170207
  Serious: Yes (Hospitalization)
  Sender: FDA-Public Use
  Company Number: US-TAIHO ONCOLOGY INC-EU-2016-02920

PATIENT
  Age: 28 Year
  Sex: Male

DRUGS (6)
  1. MACROGOL [Concomitant]
     Active Substance: POLYETHYLENE GLYCOLS
  2. LISINOPRIL. [Concomitant]
     Active Substance: LISINOPRIL
  3. LONSURF [Suspect]
     Active Substance: TIPIRACIL HYDROCHLORIDE\TRIFLURIDINE
     Indication: COLORECTAL CANCER
     Route: 048
     Dates: start: 20161003
  4. OXYCODONE [Concomitant]
     Active Substance: OXYCODONE
  5. PARACETAMOL/OXYCODONE HYDROCHLORIDE [Concomitant]
  6. FENTANYL. [Concomitant]
     Active Substance: FENTANYL
     Dosage: NI

REACTIONS (2)
  - Ascites [Unknown]
  - Constipation [Unknown]

NARRATIVE: CASE EVENT DATE: 201610
